FAERS Safety Report 7281473-6 (Version None)
Quarter: 2011Q1

REPORT INFORMATION
  Report Type: 
  Country: None (occurrence: None)
  Receive Date: 20110208
  Receipt Date: 20110125
  Transmission Date: 20110831
  Serious: Yes (Hospitalization, Other)
  Sender: FDA-Public Use
  Company Number: PHHY2010US74849

PATIENT
  Sex: Male
  Weight: 115 kg

DRUGS (7)
  1. DECADRON [Concomitant]
  2. LISINOPRIL [Concomitant]
  3. TYLENOL-500 [Concomitant]
  4. LANTUS [Concomitant]
  5. LIPITOR [Concomitant]
  6. METOPROLOL TARTRATE [Concomitant]
  7. GLEEVEC [Suspect]
     Indication: CHRONIC MYELOID LEUKAEMIA
     Dosage: 400 MG, QD
     Route: 048
     Dates: start: 20080412

REACTIONS (15)
  - MYELITIS TRANSVERSE [None]
  - DIPLEGIA [None]
  - UNRESPONSIVE TO STIMULI [None]
  - MUSCULAR WEAKNESS [None]
  - SENSORY LOSS [None]
  - PARAESTHESIA OF GENITAL MALE [None]
  - HYPOREFLEXIA [None]
  - VERTEBRAL ARTERY OCCLUSION [None]
  - ANTERIOR SPINAL ARTERY SYNDROME [None]
  - TENDONITIS [None]
  - PRURITUS [None]
  - PARAESTHESIA [None]
  - PARAPARESIS [None]
  - BITE [None]
  - LOSS OF PROPRIOCEPTION [None]
